FAERS Safety Report 13210095 (Version 1)
Quarter: 2017Q1

REPORT INFORMATION
  Report Type: Report from Study
  Country: US (occurrence: US)
  Receive Date: 20170210
  Receipt Date: 20170210
  Transmission Date: 20170428
  Serious: Yes (Other)
  Sender: FDA-Public Use
  Company Number: US-JNJFOC-20161001949

PATIENT
  Sex: Female

DRUGS (6)
  1. GABAPENTIN. [Concomitant]
     Active Substance: GABAPENTIN
  2. VENLAFAXINE HCL [Concomitant]
     Active Substance: VENLAFAXINE HYDROCHLORIDE
  3. SIMVASTATIN. [Concomitant]
     Active Substance: SIMVASTATIN
  4. IMBRUVICA [Suspect]
     Active Substance: IBRUTINIB
     Indication: CHRONIC LYMPHOCYTIC LEUKAEMIA
     Route: 048
     Dates: start: 20160924
  5. ALLOPURINOL. [Concomitant]
     Active Substance: ALLOPURINOL
  6. PROCHLORPERAZINE MALEATE. [Concomitant]
     Active Substance: PROCHLORPERAZINE MALEATE

REACTIONS (2)
  - Colitis ulcerative [Unknown]
  - Frequent bowel movements [Not Recovered/Not Resolved]
